FAERS Safety Report 8894828 (Version 2)
Quarter: 2012Q4

REPORT INFORMATION
  Report Type: 
  Country: JP (occurrence: JP)
  Receive Date: 20121108
  Receipt Date: 20121116
  Transmission Date: 20130627
  Serious: Yes (Life-Threatening, Hospitalization, Other)
  Sender: FDA-Public Use
  Company Number: JP-UCBSA-069576

PATIENT
  Age: 66 Year
  Sex: Male
  Weight: 53.4 kg

DRUGS (10)
  1. E KEPPRA [Suspect]
     Indication: EPILEPSY
     Route: 048
     Dates: start: 20120921, end: 20121003
  2. E KEPPRA [Suspect]
     Indication: EPILEPSY
     Route: 048
     Dates: start: 20110808, end: 20120920
  3. ALEVIATIN [Concomitant]
     Indication: EPILEPSY
     Dosage: DAILY DOSE: 200MG
     Route: 048
     Dates: end: 20121024
  4. CARBAMAZEPINE [Concomitant]
     Indication: EPILEPSY
     Dosage: DAILY DOSE: 300 MG
     Route: 048
     Dates: end: 20121024
  5. NU-LOTAN [Concomitant]
     Indication: HYPERTENSION
     Dosage: DAILY DOSE: 50 MG
     Route: 048
     Dates: end: 20121003
  6. AMLODIPINE [Concomitant]
     Indication: HYPERTENSION
     Dosage: DAILY DOSE:2.5 MG
     Route: 048
     Dates: end: 20121024
  7. PRAVASTATIN SODIUM [Concomitant]
     Indication: DYSLIPIDAEMIA
     Dosage: DAILY DOSE:20 MG
     Route: 048
     Dates: end: 20121024
  8. BEAUCY [Concomitant]
     Indication: POST INFLAMMATORY PIGMENTATION CHANGE
     Dosage: DAILY DOSE:3 G
     Route: 048
     Dates: end: 20121024
  9. ADALAT [Concomitant]
     Indication: HYPERTENSION
     Dosage: 5 MG x 1/ DAY
     Dates: start: 20120921, end: 20121011
  10. PENLEIV [Concomitant]
     Dates: start: 20120921, end: 20121004

REACTIONS (4)
  - Urinary retention [Recovered/Resolved]
  - Hypertension [Recovering/Resolving]
  - Urinary tract infection [Recovered/Resolved]
  - Epilepsy [Recovered/Resolved]
